FAERS Safety Report 25108336 (Version 2)
Quarter: 2025Q3

REPORT INFORMATION
  Report Type: Spontaneous
  Country: US (occurrence: US)
  Receive Date: 20250322
  Receipt Date: 20250810
  Transmission Date: 20251020
  Serious: No
  Sender: ALEXION PHARMACEUTICALS
  Company Number: US-AstraZeneca-CH-00829991A

PATIENT
  Sex: Male

DRUGS (1)
  1. FARXIGA [Suspect]
     Active Substance: DAPAGLIFLOZIN PROPANEDIOL
     Route: 065

REACTIONS (6)
  - Penile discharge [Unknown]
  - Penile pain [Unknown]
  - Penile erythema [Unknown]
  - Pruritus genital [Unknown]
  - Penile swelling [Unknown]
  - Penile dermatitis [Unknown]
